FAERS Safety Report 18439724 (Version 2)
Quarter: 2022Q2

REPORT INFORMATION
  Report Type: Spontaneous
  Country: GB (occurrence: GB)
  Receive Date: 20201029
  Receipt Date: 20220404
  Transmission Date: 20220720
  Serious: Yes (Death, Hospitalization, Other)
  Sender: FDA-Public Use
  Company Number: None

PATIENT
  Age: 54 Year
  Sex: Male

DRUGS (8)
  1. SPIRONOLACTONE [Interacting]
     Active Substance: SPIRONOLACTONE
     Indication: Ascites
     Dosage: AT 6PM
     Route: 048
     Dates: end: 20200812
  2. ENTRESTO [Interacting]
     Active Substance: SACUBITRIL\VALSARTAN
     Indication: Left ventricular dysfunction
     Dosage: 24MG/26MG
     Route: 048
     Dates: start: 20200304, end: 20200812
  3. DIGOXIN [Concomitant]
     Active Substance: DIGOXIN
  4. BISOPROLOL [Concomitant]
     Active Substance: BISOPROLOL
  5. FUROSEMIDE [Concomitant]
     Active Substance: FUROSEMIDE
  6. SIMVASTATIN [Concomitant]
     Active Substance: SIMVASTATIN
     Dosage: AT NIGHT
  7. ASPIRIN [Concomitant]
     Active Substance: ASPIRIN
  8. LANSOPRAZOLE [Concomitant]
     Active Substance: LANSOPRAZOLE

REACTIONS (6)
  - Atrial flutter [Unknown]
  - Brain injury [Not Recovered/Not Resolved]
  - Cardiac arrest [Fatal]
  - Labelled drug-drug interaction medication error [Unknown]
  - Hyperkalaemia [Recovered/Resolved]
  - Seizure [Unknown]

NARRATIVE: CASE EVENT DATE: 20200812
